FAERS Safety Report 8123477-7 (Version None)
Quarter: 2012Q1

REPORT INFORMATION
  Report Type: 
  Country: None (occurrence: None)
  Receive Date: 20120208
  Receipt Date: 20120131
  Transmission Date: 20120608
  Serious: Yes (Death)
  Sender: FDA-Public Use
  Company Number: PHHY2012IN008463

PATIENT

DRUGS (1)
  1. ONBREZ [Suspect]

REACTIONS (1)
  - DEATH [None]
